FAERS Safety Report 18208676 (Version 1)
Quarter: 2020Q3

REPORT INFORMATION
  Report Type: Spontaneous
  Country: US (occurrence: US)
  Receive Date: 20200828
  Receipt Date: 20200828
  Transmission Date: 20201103
  Serious: Yes (Other)
  Sender: FDA-Public Use
  Company Number: US-BAYER-2020-176429

PATIENT
  Age: 64 Year
  Sex: Male

DRUGS (2)
  1. KOGENATE FS [Suspect]
     Active Substance: ANTIHEMOPHILIC FACTOR, HUMAN RECOMBINANT
     Dosage: AFTER ROTATOR CUFF SURGERY TREATED PER MD ORDERS
     Route: 042
     Dates: start: 202008
  2. KOGENATE FS [Suspect]
     Active Substance: ANTIHEMOPHILIC FACTOR, HUMAN RECOMBINANT
     Dosage: 4078 U
     Route: 042

REACTIONS (1)
  - Rotator cuff repair [None]

NARRATIVE: CASE EVENT DATE: 20200818
